FAERS Safety Report 22633322 (Version 1)
Quarter: 2023Q2

REPORT INFORMATION
  Report Type: Spontaneous
  Country: AU (occurrence: AU)
  Receive Date: 20230623
  Receipt Date: 20230623
  Transmission Date: 20230722
  Serious: Yes (Hospitalization, Other)
  Sender: FDA-Public Use
  Company Number: None

PATIENT
  Age: 31 Year
  Sex: Male

DRUGS (1)
  1. QUETIAPINE FUMARATE [Suspect]
     Active Substance: QUETIAPINE FUMARATE
     Indication: Antipsychotic therapy
     Dosage: 2 DOSAGE FORM TOTAL (2X25MG QUETIAPINE)
     Dates: start: 20220307, end: 20220307

REACTIONS (1)
  - Catatonia [Recovered/Resolved]

NARRATIVE: CASE EVENT DATE: 20220307
